FAERS Safety Report 10370961 (Version 1)
Quarter: 2014Q1

REPORT INFORMATION
  Report Type: Spontaneous
  Country: US (occurrence: None)
  Receive Date: 20140306
  Receipt Date: 20140306
  Transmission Date: 20141002
  Serious: Yes (Other)
  Sender: FDA-Public Use
  Company Number: 163-21880-13080792

PATIENT
  Age: 63 Year
  Sex: Male

DRUGS (9)
  1. GABAPENTIN (GABAPENTIN) (UNKNOWN) (GABAPENTIN) [Concomitant]
  2. OXYCODONE (OXYCODONE) (UNKNOWN) (OXYCODONE) [Concomitant]
  3. ABILIFY (ARIPIPRAZOLE) (UNKNOWN) [Concomitant]
  4. ZOLOFT (SERTRALINE HYDROCHLORIDE) (UNKNOWN) [Concomitant]
  5. DILAUDID (HYDROMORPHONE HYDROCHLORIDE) (UNKNOWN) [Concomitant]
  6. PRILOSEC (OMEPRAZOLE) (UNKNOWN) [Concomitant]
  7. ZOMETA (ZOLEDRONIC ACID) (UNKNOWN) [Concomitant]
  8. DEXAMETHASONE (DEXAMETHASONE) (UNKNOWN) [Concomitant]
  9. REVLIMID (LENALIDOMIDE) (25 MILLIGRAM, CAPSULES) [Suspect]
     Indication: PLASMA CELL MYELOMA
     Route: 048
     Dates: start: 201009

REACTIONS (4)
  - Pancytopenia [None]
  - White blood cell count decreased [None]
  - Fatigue [None]
  - Treatment noncompliance [None]
